FAERS Safety Report 8955600 (Version 2)
Quarter: 2012Q4

REPORT INFORMATION
  Report Type: 
  Country: US (occurrence: US)
  Receive Date: 20121207
  Receipt Date: 20121217
  Transmission Date: 20130627
  Serious: Yes (Death)
  Sender: FDA-Public Use
  Company Number: US-ROCHE-1163829

PATIENT
  Age: 70 Year
  Sex: Female

DRUGS (1)
  1. AVASTIN [Suspect]
     Indication: PRODUCT USED FOR UNKNOWN INDICATION
     Route: 065
     Dates: end: 201004

REACTIONS (4)
  - Malignant melanoma [Fatal]
  - Metastases to lymph nodes [Fatal]
  - Metastases to central nervous system [Fatal]
  - Cardiac arrest [Fatal]
